FAERS Safety Report 17291053 (Version 1)
Quarter: 2020Q1

REPORT INFORMATION
  Report Type: Spontaneous
  Country: ES (occurrence: ES)
  Receive Date: 20200121
  Receipt Date: 20200121
  Transmission Date: 20200409
  Serious: Yes (Other)
  Sender: FDA-Public Use
  Company Number: ES-BAYER-2020-000712

PATIENT
  Age: 90 Year
  Sex: Female
  Weight: 65 kg

DRUGS (8)
  1. IBUPROFENO [Concomitant]
     Active Substance: IBUPROFEN
     Dosage: UNK
  2. ACTIRA [Suspect]
     Active Substance: MOXIFLOXACIN HYDROCHLORIDE
     Indication: RESPIRATORY FAILURE
     Dosage: 400 MG, QD
     Route: 048
     Dates: start: 20191211, end: 20191211
  3. VALSARTAN. [Concomitant]
     Active Substance: VALSARTAN
     Dosage: UNK
  4. AMLODIPINO [AMLODIPINE] [Concomitant]
     Dosage: UNK
  5. TENORMIN [Concomitant]
     Active Substance: ATENOLOL
     Dosage: UNK
  6. PARACETAMOL [Concomitant]
     Active Substance: ACETAMINOPHEN
     Dosage: UNK
  7. NITROPLAST [Concomitant]
     Active Substance: NITROGLYCERIN
     Dosage: UNK
  8. ALDOCUMAR [Concomitant]
     Active Substance: WARFARIN SODIUM
     Dosage: UNK

REACTIONS (2)
  - Diplopia [Recovered/Resolved]
  - Vision blurred [Recovered/Resolved]

NARRATIVE: CASE EVENT DATE: 20191211
